FAERS Safety Report 6940090-5 (Version None)
Quarter: 2010Q3

REPORT INFORMATION
  Report Type: 
  Country: None (occurrence: None)
  Receive Date: 20100820
  Receipt Date: 20100812
  Transmission Date: 20110219
  Serious: Yes (Disabling)
  Sender: FDA-Public Use
  Company Number: AUR-APL-2010-02022

PATIENT
  Age: 70 Year
  Sex: Male
  Weight: 85 kg

DRUGS (4)
  1. SIMVASTATIN [Suspect]
     Dosage: 20 MG UNK ORAL
     Route: 048
     Dates: start: 20091126, end: 20091201
  2. ATORVASTATIN [Suspect]
     Dosage: 10 MG UNK ORAL
     Route: 048
     Dates: start: 20031120, end: 20100201
  3. DICLOFENAC [Concomitant]
  4. QUININE SULFATE [Concomitant]

REACTIONS (2)
  - IMPAIRED HEALING [None]
  - TENDON RUPTURE [None]
